FAERS Safety Report 6696614-9 (Version None)
Quarter: 2010Q2

REPORT INFORMATION
  Report Type: 
  Country: None (occurrence: None)
  Receive Date: 20100426
  Receipt Date: 20100421
  Transmission Date: 20101027
  Serious: Yes (Hospitalization)
  Sender: FDA-Public Use
  Company Number: A0856097A

PATIENT
  Age: 75 Year
  Sex: Female

DRUGS (13)
  1. ADVAIR DISKUS 100/50 [Suspect]
     Indication: CHRONIC OBSTRUCTIVE PULMONARY DISEASE
     Dosage: 1PUFF TWICE PER DAY
     Route: 055
     Dates: start: 20060101
  2. ACETAMINOPHEN [Concomitant]
  3. ASPIRIN [Concomitant]
  4. HYOSCYAMINE [Concomitant]
  5. LASIX [Concomitant]
  6. LEVOTHYROXINE [Concomitant]
  7. LISINOPRIL [Concomitant]
  8. METOPROLOL SUCCINATE [Concomitant]
  9. OMEPRAZOLE [Concomitant]
  10. XANAX [Concomitant]
  11. CLARINEX [Concomitant]
  12. ZITHROMAX [Concomitant]
  13. SODIUM CHLORIDE 0.9% [Concomitant]

REACTIONS (1)
  - CARDIAC FAILURE CONGESTIVE [None]
